FAERS Safety Report 7411953-1 (Version None)
Quarter: 2011Q2

REPORT INFORMATION
  Report Type: 
  Country: None (occurrence: None)
  Receive Date: 20110405
  Receipt Date: 20110328
  Transmission Date: 20111010
  Serious: Yes (Hospitalization)
  Sender: FDA-Public Use
  Company Number: KV201100056

PATIENT
  Age: 37 Year
  Sex: Male

DRUGS (1)
  1. PREDNISOLONE [Suspect]
     Indication: SYSTEMIC LUPUS ERYTHEMATOSUS
     Dosage: 40, 60, 5  MG, QD, ORAL
     Route: 048

REACTIONS (5)
  - MENINGITIS [None]
  - CARDIOMEGALY [None]
  - AORTIC ANEURYSM [None]
  - CARDIAC FAILURE CHRONIC [None]
  - AORTIC VALVE INCOMPETENCE [None]
